FAERS Safety Report 9907517 (Version 2)
Quarter: 2014Q2

REPORT INFORMATION
  Report Type: Report from Study
  Country: US (occurrence: US)
  Receive Date: 20140218
  Receipt Date: 20140403
  Transmission Date: 20141212
  Serious: Yes (Hospitalization, Other)
  Sender: FDA-Public Use
  Company Number: US-BAXTER-2014BAX007509

PATIENT
  Age: 62 Year
  Sex: Female
  Weight: 104.33 kg

DRUGS (2)
  1. GAMMAGARD LIQUID [Suspect]
     Indication: IMMUNODEFICIENCY COMMON VARIABLE
     Route: 042
     Dates: start: 2006, end: 20131220
  2. GAMMAGARD S/D [Concomitant]
     Indication: IMMUNODEFICIENCY COMMON VARIABLE
     Route: 065

REACTIONS (9)
  - Pancreatitis [Recovered/Resolved]
  - Cholelithiasis [Recovered/Resolved]
  - Escherichia urinary tract infection [Recovered/Resolved]
  - Respiratory syncytial virus infection [Recovered/Resolved]
  - Abdominal pain [Recovered/Resolved]
  - Nasopharyngitis [Not Recovered/Not Resolved]
  - Arthralgia [Not Recovered/Not Resolved]
  - Oropharyngeal pain [Not Recovered/Not Resolved]
  - Myalgia [Not Recovered/Not Resolved]
